FAERS Safety Report 5511494-2 (Version None)
Quarter: 2007Q4

REPORT INFORMATION
  Report Type: 
  Country: None (occurrence: None)
  Receive Date: 20071109
  Receipt Date: 20071107
  Transmission Date: 20080405
  Serious: Yes (Other)
  Sender: FDA-Public Use
  Company Number: A0693068A

PATIENT
  Age: 30 Year
  Sex: Male
  Weight: 70 kg

DRUGS (2)
  1. COMBIVIR [Suspect]
     Dosage: 600MG TWICE PER DAY
     Route: 048
     Dates: start: 20060426
  2. EFAVIRENZ [Suspect]
     Dosage: 600MG PER DAY
     Route: 048
     Dates: start: 20060426

REACTIONS (3)
  - BLOOD CREATINE PHOSPHOKINASE INCREASED [None]
  - BLOOD LACTATE DEHYDROGENASE INCREASED [None]
  - HEPATIC ENZYME INCREASED [None]
